FAERS Safety Report 7679455-5 (Version None)
Quarter: 2011Q3

REPORT INFORMATION
  Report Type: 
  Country: None (occurrence: None)
  Receive Date: 20110812
  Receipt Date: 20110812
  Transmission Date: 20111222
  Serious: No
  Sender: FDA-Public Use
  Company Number: None

PATIENT
  Age: 36 Year
  Sex: Female
  Weight: 66.224 kg

DRUGS (1)
  1. TRIMETHOPRIM [Suspect]
     Indication: LABORATORY TEST
     Dosage: 100 MG
     Route: 048
     Dates: start: 20110809, end: 20110809

REACTIONS (3)
  - RASH GENERALISED [None]
  - PRURITUS [None]
  - RASH MACULAR [None]
